FAERS Safety Report 12986281 (Version 2)
Quarter: 2016Q4

REPORT INFORMATION
  Report Type: Spontaneous
  Country: JP (occurrence: JP)
  Receive Date: 20161130
  Receipt Date: 20161216
  Transmission Date: 20170207
  Serious: Yes (Other)
  Sender: FDA-Public Use
  Company Number: JP-SUCAMPO PHARMACEUTICALS INC.-SPI201601309

PATIENT
  Sex: Female

DRUGS (2)
  1. BENZODIAZEPINE DRUGS [Suspect]
     Active Substance: BENZODIAZEPINE
  2. AMITIZA [Suspect]
     Active Substance: LUBIPROSTONE
     Indication: CONSTIPATION
     Route: 048

REACTIONS (1)
  - Delirium [Unknown]
